FAERS Safety Report 19368022 (Version 1)
Quarter: 2021Q2

REPORT INFORMATION
  Report Type: Report from Study
  Country: US (occurrence: US)
  Receive Date: 20210603
  Receipt Date: 20210603
  Transmission Date: 20210717
  Serious: Yes (Death)
  Sender: FDA-Public Use
  Company Number: US-ROCHE-2842223

PATIENT
  Age: 58 Year
  Sex: Male
  Weight: 87.3 kg

DRUGS (3)
  1. VENETOCLAX. [Suspect]
     Active Substance: VENETOCLAX
     Indication: CHRONIC LYMPHOCYTIC LEUKAEMIA
     Dosage: 20 MG, EVERY DAY (DAY 1, CYCLE 2 TO 6), 50 MG EVERY DAY (DAY 1 TO 7, CYCLE 3), 100 MG EVERY DAY (DAY
     Route: 048
     Dates: start: 20210311
  2. OBINUTUZUMAB. [Suspect]
     Active Substance: OBINUTUZUMAB
     Indication: CHRONIC LYMPHOCYTIC LEUKAEMIA
     Dosage: 100 MG ON C1D1, 900 MG ON C2D2, 1000 MG ON C1D8, C1D15, AND DAY 1 (C1 TO C6)
     Route: 042
     Dates: start: 20210311
  3. IBRUTINIB [Suspect]
     Active Substance: IBRUTINIB
     Indication: CHRONIC LYMPHOCYTIC LEUKAEMIA
     Dosage: ON DAYS 1?28, CYCLES 1?19
     Route: 048
     Dates: start: 20210311

REACTIONS (1)
  - Sudden death [Fatal]

NARRATIVE: CASE EVENT DATE: 20210421
